FAERS Safety Report 21612182 (Version 1)
Quarter: 2022Q4

REPORT INFORMATION
  Report Type: Spontaneous
  Country: NL (occurrence: NL)
  Receive Date: 20221118
  Receipt Date: 20221118
  Transmission Date: 20230113
  Serious: Yes (Hospitalization)
  Sender: FDA-Public Use
  Company Number: None

PATIENT
  Sex: Female

DRUGS (7)
  1. AMOXICILLIN [Suspect]
     Active Substance: AMOXICILLIN
     Indication: Infection
     Dosage: 1500 MILLIGRAM DAILY; 1 PIECE 3 TIMES A DAY ,  DISPERTABLET 500MG / BRAND NAME NOT SPECIFIED ,  THER
     Dates: start: 20221020
  2. LOSEC [Concomitant]
     Active Substance: OMEPRAZOLE
     Indication: Product used for unknown indication
     Dosage: FORM STRENGTH : 40 MG (MILLIGRAMS) , OMEPRAZOLE TABLET MSR 40MG / LOSEC MUPS TABLET MSR 40MG , THER
  3. FUROSEMIDE [Concomitant]
     Active Substance: FUROSEMIDE
     Indication: Product used for unknown indication
     Dosage: FORM STRENGTH : 40 MG (MILLIGRAM)  ,  BRAND NAME NOT SPECIFIED , THERAPY START DATE AND END DATE : A
  4. IRBESARTAN [Concomitant]
     Active Substance: IRBESARTAN
     Indication: Product used for unknown indication
     Dosage: FORM STRENGTH :  300 MG (MILLIGRAM) , IRBESARTAN TABLET 300MG / APROVEL TABLET FILM COATING 300MG  ,
  5. ATORVASTATIN [Concomitant]
     Active Substance: ATORVASTATIN
     Indication: Product used for unknown indication
     Dosage: FORM STRENGTH : 40 MG (MILLIGRAM) ,   / BRAND NAME NOT SPECIFIED , THERAPY START DATE AND END DATE :
  6. METOPROLOL SUCCINATE [Concomitant]
     Active Substance: METOPROLOL SUCCINATE
     Indication: Product used for unknown indication
     Dosage: FORM STRENGTH :  50 MG (MILLIGRAM) , TABLET MGA 50MG (SUCCINATE) / BRAND NAME NOT SPECIFIED , THERAP
  7. ASPIRIN [Concomitant]
     Active Substance: ASPIRIN
     Indication: Product used for unknown indication
     Dosage: FORM STRENGTH : 80 MG (MILLIGRAM)  ,  / BRAND NAME NOT SPECIFIED

REACTIONS (3)
  - Skin exfoliation [Not Recovered/Not Resolved]
  - Pruritus [Not Recovered/Not Resolved]
  - Rash erythematous [Not Recovered/Not Resolved]
